FAERS Safety Report 10218964 (Version 3)
Quarter: 2014Q2

REPORT INFORMATION
  Report Type: Report from Study
  Country: JP (occurrence: JP)
  Receive Date: 20140605
  Receipt Date: 20140626
  Transmission Date: 20141212
  Serious: Yes (Hospitalization)
  Sender: FDA-Public Use
  Company Number: JP-ASTRAZENECA-2014SE38707

PATIENT
  Age: 23607 Day
  Sex: Female

DRUGS (3)
  1. AZD6140 [Suspect]
     Indication: CORONARY ARTERY DISEASE
     Route: 048
     Dates: start: 20111018, end: 20140519
  2. BAYASPIRIN [Suspect]
     Route: 048
  3. PARIET [Suspect]
     Indication: GASTRITIS PROPHYLAXIS
     Route: 048

REACTIONS (1)
  - Non-alcoholic steatohepatitis [Not Recovered/Not Resolved]
